FAERS Safety Report 12999466 (Version 2)
Quarter: 2017Q1

REPORT INFORMATION
  Report Type: Spontaneous
  Country: US (occurrence: US)
  Receive Date: 20161205
  Receipt Date: 20170127
  Transmission Date: 20170428
  Serious: No
  Sender: FDA-Public Use
  Company Number: COL_25178_2016

PATIENT
  Age: 46 Year
  Sex: Female

DRUGS (2)
  1. NABUMETONE. [Concomitant]
     Active Substance: NABUMETONE
     Indication: PRODUCT USED FOR UNKNOWN INDICATION
     Dosage: 750MG/NI/
  2. COLGATE MAX WHITE CRYSTAL MINT [Suspect]
     Active Substance: SODIUM FLUORIDE
     Indication: DENTAL DISORDER PROPHYLAXIS
     Dosage: HALF THE LENGTH OF TOOTHBRUSH HEAD/2 TIMES DAILY/
     Route: 048
     Dates: start: 20161117, end: 20161121

REACTIONS (16)
  - Pain [Not Recovered/Not Resolved]
  - Urticaria [Not Recovered/Not Resolved]
  - Sensitivity of teeth [Not Recovered/Not Resolved]
  - Dermatitis [Not Recovered/Not Resolved]
  - Pharyngeal oedema [Recovering/Resolving]
  - Oral disorder [Unknown]
  - Hypersensitivity [Recovered/Resolved]
  - Poor quality sleep [Recovering/Resolving]
  - Pruritus [Not Recovered/Not Resolved]
  - Dyspnoea [Recovered/Resolved]
  - Tongue movement disturbance [Recovering/Resolving]
  - Dry mouth [Recovering/Resolving]
  - Lip discolouration [Recovering/Resolving]
  - Chapped lips [Recovering/Resolving]
  - Gingival swelling [Unknown]
  - Dysphonia [Recovering/Resolving]

NARRATIVE: CASE EVENT DATE: 201611
